FAERS Safety Report 7481232-5 (Version None)
Quarter: 2011Q2

REPORT INFORMATION
  Report Type: 
  Country: None (occurrence: None)
  Receive Date: 20110512
  Receipt Date: 20110512
  Transmission Date: 20111010
  Serious: Yes (Hospitalization)
  Sender: FDA-Public Use
  Company Number: None

PATIENT
  Sex: Female
  Weight: 55.7924 kg

DRUGS (1)
  1. ACTEMRA [Suspect]
     Indication: ARTHRITIS
     Dosage: 4  4 WEEK PORT; 4 PORT

REACTIONS (6)
  - DIARRHOEA [None]
  - VOMITING [None]
  - DEHYDRATION [None]
  - PYREXIA [None]
  - PHARYNGITIS STREPTOCOCCAL [None]
  - RHEUMATOID ARTHRITIS [None]
